FAERS Safety Report 8488274-1 (Version None)
Quarter: 2012Q3

REPORT INFORMATION
  Report Type: 
  Country: None (occurrence: None)
  Receive Date: 20120705
  Receipt Date: 20120628
  Transmission Date: 20120928
  Serious: Yes (Other)
  Sender: FDA-Public Use
  Company Number: US-PFIZER INC-2010140111

PATIENT
  Sex: Female
  Weight: 53.5 kg

DRUGS (8)
  1. CELEBREX [Suspect]
     Dosage: UNK
  2. DARIFENACIN [Suspect]
     Dosage: UNK
  3. PREMARIN [Suspect]
     Dosage: 0.625 MG, 1X/DAY
     Route: 048
     Dates: start: 20100927, end: 20101001
  4. MOBIC [Suspect]
     Dosage: UNK
  5. VAGIFEM [Suspect]
     Dosage: UNK
     Dates: start: 20100827
  6. PREMARIN [Suspect]
     Indication: HORMONE REPLACEMENT THERAPY
     Dosage: 0.3 MG, 1X/DAY
     Route: 048
     Dates: start: 19700101, end: 20060101
  7. PREMARIN [Suspect]
     Dosage: 0.3 MG, 1X/DAY
     Route: 048
     Dates: start: 20100801, end: 20100927
  8. ACETAMINOPHEN [Suspect]
     Dosage: UNK

REACTIONS (7)
  - KNEE ARTHROPLASTY [None]
  - POST PROCEDURAL DISCOMFORT [None]
  - CYSTOCELE [None]
  - CONSTIPATION [None]
  - BREAST TENDERNESS [None]
  - SURGERY [None]
  - URINARY RETENTION [None]
